FAERS Safety Report 10503835 (Version 2)
Quarter: 2014Q4

REPORT INFORMATION
  Report Type: Spontaneous
  Country: US (occurrence: US)
  Receive Date: 20141008
  Receipt Date: 20141114
  Transmission Date: 20150528
  Serious: No
  Sender: FDA-Public Use
  Company Number: US-PFIZER INC-2014266339

PATIENT
  Age: 57 Year
  Sex: Male

DRUGS (1)
  1. DEPO-TESTOSTERONE [Suspect]
     Active Substance: TESTOSTERONE CYPIONATE
     Dosage: 200 MG, ONCE EVERY TWO WEEKS
     Route: 030
     Dates: start: 20140719

REACTIONS (2)
  - Product quality issue [Unknown]
  - Blood testosterone decreased [Unknown]

NARRATIVE: CASE EVENT DATE: 2014
